FAERS Safety Report 15459492 (Version 1)
Quarter: 2018Q4

REPORT INFORMATION
  Report Type: Spontaneous
  Country: DE (occurrence: DE)
  Receive Date: 20181003
  Receipt Date: 20181003
  Transmission Date: 20190204
  Serious: Yes (Hospitalization)
  Sender: FDA-Public Use
  Company Number: DE-TEVA-192012ISR

PATIENT
  Age: 95 Year
  Sex: Female
  Weight: 54 kg

DRUGS (10)
  1. DIGITOXIN [Suspect]
     Active Substance: DIGITOXIN
     Dates: start: 20081006, end: 20081008
  2. CHLORALDURAT [Concomitant]
     Indication: SLEEP DISORDER
     Route: 048
  3. METHIZOL [Concomitant]
     Active Substance: METHIMAZOLE
     Indication: HYPERTHYROIDISM
     Route: 048
  4. CLEXANE [Concomitant]
     Active Substance: ENOXAPARIN SODIUM
     Indication: FEMORAL NECK FRACTURE
     Route: 058
     Dates: start: 2008
  5. DIGITOXIN [Suspect]
     Active Substance: DIGITOXIN
     Indication: ATRIAL FIBRILLATION
     Dosage: .07 MILLIGRAM DAILY;
     Route: 048
     Dates: end: 20081008
  6. MELPERONE [Concomitant]
     Active Substance: MELPERONE
     Indication: DEMENTIA
     Route: 048
  7. TORASEMIDE [Suspect]
     Active Substance: TORSEMIDE
     Indication: HYPERTENSION
     Dosage: 20 MILLIGRAM DAILY;
     Route: 048
  8. BERLOSIN [Concomitant]
     Active Substance: METAMIZOLE
     Indication: FEMORAL NECK FRACTURE
     Route: 048
     Dates: start: 2008
  9. NEXIUM MUPS [Concomitant]
     Active Substance: ESOMEPRAZOLE MAGNESIUM
     Indication: PROPHYLAXIS AGAINST GASTROINTESTINAL ULCER
     Route: 048
     Dates: start: 2008
  10. IBUPROFEN. [Concomitant]
     Active Substance: IBUPROFEN
     Indication: FEMORAL NECK FRACTURE
     Route: 048
     Dates: start: 2008

REACTIONS (2)
  - Bradyarrhythmia [Recovered/Resolved]
  - Hypokalaemia [Recovered/Resolved]

NARRATIVE: CASE EVENT DATE: 20081005
